FAERS Safety Report 6062368-2 (Version None)
Quarter: 2009Q1

REPORT INFORMATION
  Report Type: 
  Country: None (occurrence: None)
  Receive Date: 20090203
  Receipt Date: 20090127
  Transmission Date: 20090719
  Serious: Yes (Other)
  Sender: FDA-Public Use
  Company Number: NO-BAXTER-2009BH000185

PATIENT
  Age: 27 Year
  Sex: Male

DRUGS (6)
  1. HOLOXAN BAXTER [Suspect]
     Indication: TESTIS CANCER
     Route: 065
     Dates: start: 20081103, end: 20081106
  2. HOLOXAN BAXTER [Suspect]
     Route: 065
     Dates: start: 20081103, end: 20081106
  3. BLEOMYCIN GENERIC [Suspect]
     Indication: TESTIS CANCER
     Route: 065
     Dates: start: 20081103, end: 20081103
  4. CISPLATIN [Suspect]
     Indication: TESTIS CANCER
     Route: 065
     Dates: start: 20081103, end: 20081106
  5. ETOPOSIDE [Suspect]
     Indication: TESTIS CANCER
     Route: 065
     Dates: start: 20081103, end: 20081106
  6. MESNA [Suspect]
     Indication: TESTIS CANCER
     Route: 065
     Dates: start: 20081103, end: 20081106

REACTIONS (1)
  - EPILEPSY [None]
